FAERS Safety Report 12759487 (Version 2)
Quarter: 2016Q3

REPORT INFORMATION
  Report Type: Report from Study
  Country: RO (occurrence: RO)
  Receive Date: 20160919
  Receipt Date: 20160930
  Transmission Date: 20161109
  Serious: Yes (Hospitalization)
  Sender: FDA-Public Use
  Company Number: RO-ABBVIE-16P-135-1731112-00

PATIENT
  Age: 45 Year
  Sex: Female

DRUGS (4)
  1. VIEKIRAX [Suspect]
     Active Substance: OMBITASVIR\PARITAPREVIR\RITONAVIR
     Indication: HEPATITIS C
     Dosage: 2 IN THE MORNING (2-0-0)
     Route: 048
     Dates: start: 20160401, end: 20160627
  2. VIEKIRAX [Suspect]
     Active Substance: OMBITASVIR\PARITAPREVIR\RITONAVIR
     Indication: HEPATIC CIRRHOSIS
  3. EXVIERA [Suspect]
     Active Substance: DASABUVIR
     Indication: HEPATITIS C
     Dosage: 1 IN THE MORNING AND 1 IN THE EVENING (1-0-1)
     Route: 048
     Dates: start: 20160401, end: 20160627
  4. EXVIERA [Suspect]
     Active Substance: DASABUVIR
     Indication: HEPATIC CIRRHOSIS

REACTIONS (5)
  - Dizziness [Recovered/Resolved]
  - Hepatomegaly [Not Recovered/Not Resolved]
  - Ovarian cancer [Recovered/Resolved]
  - Vomiting [Recovered/Resolved]
  - Retroperitoneal cancer [Recovered/Resolved]

NARRATIVE: CASE EVENT DATE: 20160831
